FAERS Safety Report 24331275 (Version 1)
Quarter: 2024Q3

REPORT INFORMATION
  Report Type: Spontaneous
  Country: US (occurrence: US)
  Receive Date: 20240918
  Receipt Date: 20240918
  Transmission Date: 20241017
  Serious: Yes (Hospitalization, Other)
  Sender: LUPIN
  Company Number: US-LUPIN PHARMACEUTICALS INC.-2024-08994

PATIENT
  Age: 35 Year
  Sex: Male

DRUGS (1)
  1. SEVELAMER HYDROCHLORIDE [Suspect]
     Active Substance: SEVELAMER HYDROCHLORIDE
     Indication: End stage renal disease
     Dosage: 2400 MILLIGRAM, TID, 3 TIMES DAILY
     Route: 065

REACTIONS (3)
  - Ischaemic enteritis [Recovered/Resolved]
  - Haematochezia [Recovered/Resolved]
  - Mucosal necrosis [Recovered/Resolved]
